FAERS Safety Report 19910027 (Version 7)
Quarter: 2022Q2

REPORT INFORMATION
  Report Type: Report from Study
  Country: US (occurrence: US)
  Receive Date: 20211003
  Receipt Date: 20220408
  Transmission Date: 20220720
  Serious: No
  Sender: FDA-Public Use
  Company Number: NVSC2021US222753

PATIENT
  Age: 53 Year
  Sex: Male

DRUGS (1)
  1. ENTRESTO [Suspect]
     Active Substance: SACUBITRIL\VALSARTAN
     Indication: Product used for unknown indication
     Dosage: 0.5 DOSAGE FORM, QD (24/26 MG) HALF A TAB
     Route: 048
     Dates: start: 202108

REACTIONS (7)
  - Hypotension [Unknown]
  - Wrong technique in product usage process [Unknown]
  - Indifference [Unknown]
  - Decreased activity [Unknown]
  - Asthenia [Unknown]
  - Throat clearing [Unknown]
  - Off label use [Unknown]

NARRATIVE: CASE EVENT DATE: 20210801
